FAERS Safety Report 4495719-0 (Version None)
Quarter: 2004Q4

REPORT INFORMATION
  Report Type: 
  Country: None (occurrence: None)
  Receive Date: 20041108
  Receipt Date: 20041028
  Transmission Date: 20050328
  Serious: Yes (Life-Threatening, Hospitalization, Disabling)
  Sender: FDA-Public Use
  Company Number: US-MERCK-0410USA04349

PATIENT
  Age: 60 Year
  Sex: Female

DRUGS (7)
  1. VIOXX [Suspect]
     Indication: RHEUMATOID ARTHRITIS
     Route: 048
     Dates: start: 19990101, end: 20040930
  2. [THERAPY UNSPECIFIED] [Concomitant]
     Route: 065
  3. PLAVIX [Concomitant]
     Route: 065
  4. ARAVA [Concomitant]
     Route: 065
  5. FOLIC ACID [Concomitant]
     Route: 065
  6. PREVACID [Concomitant]
     Route: 065
  7. REMICADE [Concomitant]
     Route: 065

REACTIONS (1)
  - CARDIAC FAILURE [None]
